FAERS Safety Report 5416061-7 (Version None)
Quarter: 2007Q3

REPORT INFORMATION
  Report Type: 
  Country: None (occurrence: None)
  Receive Date: 20070815
  Receipt Date: 20070808
  Transmission Date: 20080115
  Serious: Yes (Other)
  Sender: FDA-Public Use
  Company Number: JP-MERCK-0706USA04540

PATIENT
  Age: 70 Year
  Sex: Female
  Weight: 47 kg

DRUGS (7)
  1. FOSAMAX [Suspect]
     Indication: OSTEOPOROSIS
     Route: 048
     Dates: start: 20070328, end: 20070604
  2. FOSAMAX [Suspect]
     Route: 048
     Dates: start: 20070601
  3. AMLODIPINE [Concomitant]
     Route: 048
     Dates: start: 20040101
  4. AMOBAN [Concomitant]
     Route: 048
     Dates: start: 20070129
  5. CRESTOR [Concomitant]
     Route: 048
     Dates: start: 20070328
  6. ONEALFA [Concomitant]
     Route: 048
     Dates: start: 20070328
  7. ZOLPIDEM TARTRATE [Concomitant]
     Route: 048
     Dates: start: 20070427

REACTIONS (1)
  - THROMBOCYTOPENIA [None]
